FAERS Safety Report 19404861 (Version 1)
Quarter: 2021Q2

REPORT INFORMATION
  Report Type: Spontaneous
  Country: JP (occurrence: JP)
  Receive Date: 20210611
  Receipt Date: 20210611
  Transmission Date: 20210717
  Serious: Yes (Other)
  Sender: FDA-Public Use
  Company Number: JP-MICRO LABS LIMITED-ML2021-01821

PATIENT
  Age: 38 Year
  Sex: Female

DRUGS (5)
  1. LEVOFLOXACIN. [Suspect]
     Active Substance: LEVOFLOXACIN
  2. PANTOPRAZOLE [Suspect]
     Active Substance: PANTOPRAZOLE
  3. D?CHLORPHENIRAMINE MALEATE [Suspect]
     Active Substance: DEXCHLORPHENIRAMINE MALEATE
  4. DICLOFENAC [Suspect]
     Active Substance: DICLOFENAC
  5. AMPICILLIN SODIUM. [Suspect]
     Active Substance: AMPICILLIN SODIUM

REACTIONS (1)
  - Drug reaction with eosinophilia and systemic symptoms [Unknown]
